FAERS Safety Report 5412619-X (Version None)
Quarter: 2007Q3

REPORT INFORMATION
  Report Type: 
  Country: None (occurrence: None)
  Receive Date: 20070809
  Receipt Date: 20070726
  Transmission Date: 20080115
  Serious: Yes (Hospitalization, Other)
  Sender: FDA-Public Use
  Company Number: 159454ISR

PATIENT
  Age: 83 Year
  Sex: Male

DRUGS (1)
  1. SIMVASTATIN [Suspect]
     Dosage: (40 MG)
     Route: 048
     Dates: start: 20070703

REACTIONS (6)
  - BACK PAIN [None]
  - BILE DUCT CANCER [None]
  - DECREASED APPETITE [None]
  - FATIGUE [None]
  - MOBILITY DECREASED [None]
  - RHABDOMYOLYSIS [None]
